FAERS Safety Report 20667272 (Version 2)
Quarter: 2022Q3

REPORT INFORMATION
  Report Type: Spontaneous
  Country: CA (occurrence: CA)
  Receive Date: 20220404
  Receipt Date: 20220810
  Transmission Date: 20221027
  Serious: Yes (Other)
  Sender: FDA-Public Use
  Company Number: CA-BoehringerIngelheim-2022-BI-163023

PATIENT
  Age: 72 Year
  Sex: Male

DRUGS (5)
  1. SYNJARDY [Suspect]
     Active Substance: EMPAGLIFLOZIN\METFORMIN HYDROCHLORIDE
     Indication: Product used for unknown indication
  2. MEPOLIZUMAB [Suspect]
     Active Substance: MEPOLIZUMAB
     Indication: Asthma
     Dosage: POWDER FOR INJECTION
     Route: 042
  3. MEPOLIZUMAB [Suspect]
     Active Substance: MEPOLIZUMAB
     Dosage: POWDER FOR INJECTION
     Route: 058
  4. COVID-19 VACCINE NOS [Suspect]
     Active Substance: COVID-19 VACCINE NOS
     Indication: COVID-19 immunisation
  5. VAXZEVRIA [Suspect]
     Active Substance: AZD-1222
     Indication: COVID-19 immunisation
     Dosage: SOLUTION INTRAMUSCULAR

REACTIONS (6)
  - Weight abnormal [Unknown]
  - Blood glucose abnormal [Unknown]
  - Blood glucose increased [Unknown]
  - Cataract [Unknown]
  - Diabetic neuropathy [Unknown]
  - Glaucoma [Unknown]
